FAERS Safety Report 9222697 (Version 4)
Quarter: 2016Q3

REPORT INFORMATION
  Report Type: Report from Study
  Country: DE (occurrence: DE)
  Receive Date: 20130410
  Receipt Date: 20160809
  Transmission Date: 20161109
  Serious: Yes (Other)
  Sender: FDA-Public Use
  Company Number: DE-ROCHE-1208743

PATIENT

DRUGS (2)
  1. HEPARIN [Concomitant]
     Active Substance: HEPARIN SODIUM
     Dosage: 5000 U
     Route: 065
  2. ALTEPLASE [Suspect]
     Active Substance: ALTEPLASE
     Indication: RETINAL ARTERY OCCLUSION
     Dosage: MAXIMUM OF 50 MG
     Route: 013

REACTIONS (1)
  - Intraocular pressure increased [Unknown]
